FAERS Safety Report 18124804 (Version 6)
Quarter: 2023Q1

REPORT INFORMATION
  Report Type: Report from Study
  Country: FR (occurrence: FR)
  Receive Date: 20200807
  Receipt Date: 20230113
  Transmission Date: 20230418
  Serious: No
  Sender: FDA-Public Use
  Company Number: FR-JNJFOC-20200744490

PATIENT
  Age: 67 Year
  Sex: Male
  Weight: 66.5 kg

DRUGS (1)
  1. ERDAFITINIB [Suspect]
     Active Substance: ERDAFITINIB
     Indication: Transitional cell carcinoma
     Dosage: MEDICATION KIT NUMBER 149011 AND 149009
     Route: 048
     Dates: start: 20200420

REACTIONS (3)
  - Wound [Not Recovered/Not Resolved]
  - Dermatophytosis of nail [Not Recovered/Not Resolved]
  - Limb injury [Not Recovered/Not Resolved]

NARRATIVE: CASE EVENT DATE: 20200717
